FAERS Safety Report 16655235 (Version 2)
Quarter: 2019Q3

REPORT INFORMATION
  Report Type: Spontaneous
  Country: US (occurrence: US)
  Receive Date: 20190801
  Receipt Date: 20190816
  Transmission Date: 20191004
  Serious: Yes (Other)
  Sender: FDA-Public Use
  Company Number: US-LUPIN PHARMACEUTICALS INC.-2019-04762

PATIENT
  Sex: Male

DRUGS (2)
  1. DESVENLAFAXINE EXTENDED RELEASE TABLET 50 MG [Suspect]
     Active Substance: DESVENLAFAXINE
     Indication: MAJOR DEPRESSION
     Dosage: UNK
     Route: 065
  2. DESVENLAFAXINE EXTENDED RELEASE TABLET 50 MG [Suspect]
     Active Substance: DESVENLAFAXINE
     Indication: PANIC DISORDER
     Dosage: UNK
     Route: 065

REACTIONS (13)
  - Fatigue [Unknown]
  - Hyperhidrosis [Unknown]
  - Product substitution issue [Unknown]
  - Dissociative disorder [Unknown]
  - Syncope [Unknown]
  - Panic reaction [Unknown]
  - Malaise [Unknown]
  - Negative thoughts [Unknown]
  - Depression [Unknown]
  - Drug withdrawal syndrome [Unknown]
  - Autonomic nervous system imbalance [Unknown]
  - Dizziness [Unknown]
  - Loss of consciousness [Unknown]

NARRATIVE: CASE EVENT DATE: 201904
